FAERS Safety Report 12100165 (Version 1)
Quarter: 2016Q1

REPORT INFORMATION
  Report Type: Spontaneous
  Country: CH (occurrence: CH)
  Receive Date: 20160222
  Receipt Date: 20160222
  Transmission Date: 20160526
  Serious: Yes (Hospitalization, Other)
  Sender: FDA-Public Use
  Company Number: CH-PFIZER INC-2016097436

PATIENT
  Age: 81 Year
  Sex: Female

DRUGS (10)
  1. GABAPENTIN. [Suspect]
     Active Substance: GABAPENTIN
     Indication: NEURALGIA
     Dosage: 300 MG, DAILY (100MG IN THE MORNING AND 200MG IN THE EVENING)
     Dates: start: 201204
  2. SYMFONA [Concomitant]
     Active Substance: GINKGO
     Dosage: 60 MG, 1X/DAY
     Route: 048
  3. COSAAR [Concomitant]
     Active Substance: LOSARTAN POTASSIUM
     Dosage: 50 MG, 1X/DAY
     Route: 048
  4. RIVOTRIL [Concomitant]
     Active Substance: CLONAZEPAM
     Dosage: 0.5 MG, 1X/DAY
     Route: 048
  5. GABAPENTIN. [Suspect]
     Active Substance: GABAPENTIN
     Dosage: 100 MG, 3X/DAY
     Route: 048
  6. GABAPENTIN. [Suspect]
     Active Substance: GABAPENTIN
     Indication: NEURALGIA
     Dosage: 100 MG, 1X/DAY
     Route: 048
     Dates: start: 201202
  7. GABAPENTIN. [Suspect]
     Active Substance: GABAPENTIN
     Dosage: 500 MG, DAILY (200MG IN THE MORNING AND 300MG IN THE EVENING)
     Route: 048
     Dates: start: 201212
  8. ASPIRIN CARDIO [Concomitant]
     Active Substance: ASPIRIN
     Dosage: 100 MG, 1X/DAY
     Route: 048
  9. ARANESP [Concomitant]
     Active Substance: DARBEPOETIN ALFA
     Dosage: 40 UG, 2X/MONTH
     Route: 058
  10. TOREM [Concomitant]
     Active Substance: TORSEMIDE
     Dosage: 100 MG, 2X/DAY
     Route: 048

REACTIONS (5)
  - Prescribed overdose [Unknown]
  - Confusional state [Recovered/Resolved]
  - Suicide attempt [Unknown]
  - Toxicity to various agents [Unknown]
  - Drug effect incomplete [Unknown]

NARRATIVE: CASE EVENT DATE: 201212
